FAERS Safety Report 7947074-9 (Version None)
Quarter: 2011Q4

REPORT INFORMATION
  Report Type: 
  Country: None (occurrence: None)
  Receive Date: 20111129
  Receipt Date: 20111006
  Transmission Date: 20120403
  Serious: No
  Sender: FDA-Public Use
  Company Number: US-ASTRAZENECA-2011SE60581

PATIENT
  Age: 53 Year
  Sex: Female
  Weight: 74.8 kg

DRUGS (1)
  1. VIMOVO [Suspect]
     Indication: ARTHRITIS
     Dosage: 500 MG / 20 MG, BID
     Route: 048
     Dates: end: 20110901

REACTIONS (4)
  - ABDOMINAL DISCOMFORT [None]
  - ABDOMINAL PAIN UPPER [None]
  - BURN OESOPHAGEAL [None]
  - DIARRHOEA [None]
